FAERS Safety Report 9156021 (Version 1)
Quarter: 2013Q1

REPORT INFORMATION
  Report Type: Spontaneous
  Country: US (occurrence: US)
  Receive Date: 20130311
  Receipt Date: 20130311
  Transmission Date: 20140127
  Serious: No
  Sender: FDA-Public Use
  Company Number: US-PFIZER INC-2013079500

PATIENT
  Sex: Female

DRUGS (1)
  1. CHANTIX [Suspect]
     Indication: SMOKING CESSATION THERAPY
     Dosage: 0.5 MG, 1X/DAY
     Dates: start: 20130301

REACTIONS (7)
  - Tobacco user [Unknown]
  - Nervousness [Unknown]
  - Anger [Unknown]
  - Agitation [Unknown]
  - Insomnia [Unknown]
  - Feeling jittery [Unknown]
  - Irritability [Unknown]
